FAERS Safety Report 6405454-7 (Version None)
Quarter: 2009Q4

REPORT INFORMATION
  Report Type: 
  Country: None (occurrence: None)
  Receive Date: 20091016
  Receipt Date: 20091016
  Transmission Date: 20100525
  Serious: Yes (Other)
  Sender: FDA-Public Use
  Company Number: None

PATIENT
  Age: 63 Year
  Sex: Male
  Weight: 108.8633 kg

DRUGS (2)
  1. CHOLESTYRAMINE FOR ORAL SUSPENSION 4 GRAMS [Suspect]
     Indication: ABDOMINAL DISTENSION
     Dosage: 1 SCOOP MIX WITH JUICE ONCE A DAY
     Dates: start: 20090916
  2. CHOLESTYRAMINE FOR ORAL SUSPENSION 4 GRAMS [Suspect]
     Indication: FLATULENCE
     Dosage: 1 SCOOP MIX WITH JUICE ONCE A DAY
     Dates: start: 20090916

REACTIONS (6)
  - ABDOMINAL PAIN [None]
  - ABDOMINAL PAIN UPPER [None]
  - BACK PAIN [None]
  - CHEST DISCOMFORT [None]
  - FLATULENCE [None]
  - PARAESTHESIA [None]
